FAERS Safety Report 9194062 (Version 2)
Quarter: 2013Q2

REPORT INFORMATION
  Report Type: Spontaneous
  Country: US (occurrence: US)
  Receive Date: 20130327
  Receipt Date: 20130417
  Transmission Date: 20140414
  Serious: Yes (Other)
  Sender: FDA-Public Use
  Company Number: US-PFIZER INC-2013093711

PATIENT
  Sex: Female

DRUGS (2)
  1. PREMARIN [Suspect]
     Dosage: 1.25 MG, UNK
  2. DETROL LA [Suspect]
     Dosage: 4 MG, UNK

REACTIONS (1)
  - Tardive dyskinesia [Unknown]
